FAERS Safety Report 19679167 (Version 2)
Quarter: 2022Q3

REPORT INFORMATION
  Report Type: Spontaneous
  Country: BH (occurrence: BH)
  Receive Date: 20210809
  Receipt Date: 20220708
  Transmission Date: 20221026
  Serious: Yes (Hospitalization, Other)
  Sender: FDA-Public Use
  Company Number: BH-MALLINCKRODT PHARMACEUTICALS-T202103551

PATIENT
  Age: 52 Year
  Sex: Female

DRUGS (28)
  1. OFIRMEV [Suspect]
     Active Substance: ACETAMINOPHEN
     Indication: COVID-19 pneumonia
     Dosage: (4000 MILLIGRAM) 1000 MILLIGRAM, Q6H (AS NEEDED)
     Route: 042
  2. DEXAMETHASONE [Suspect]
     Active Substance: DEXAMETHASONE
     Indication: COVID-19 pneumonia
     Dosage: 6 MILLIGRAM, QD
     Route: 042
  3. DEXAMETHASONE [Suspect]
     Active Substance: DEXAMETHASONE
     Indication: Steroid therapy
     Dosage: 6 MILLIGRAM, QD
     Route: 048
  4. ACETAMINOPHEN [Suspect]
     Active Substance: ACETAMINOPHEN
     Indication: COVID-19 pneumonia
     Dosage: 1000 MILLIGRAM, Q6H (AS NEEDED)
     Route: 048
  5. DOXYCYCLINE [Suspect]
     Active Substance: DOXYCYCLINE
     Indication: COVID-19 pneumonia
     Dosage: 100 MILLIGRAM, Q12H
     Route: 048
  6. OMEPRAZOLE [Suspect]
     Active Substance: OMEPRAZOLE
     Indication: COVID-19 pneumonia
     Dosage: (40 MILLIGRAM(S)) 20 MILLIGRAM, Q12H
     Route: 042
  7. OMEPRAZOLE [Suspect]
     Active Substance: OMEPRAZOLE
     Dosage: 20 MG INTRAVENOUSLY TWO TIMES PER DAY/20 MG PER ORAL TWO TIMES PER DAY
     Route: 048
  8. CEFTRIAXONE [Suspect]
     Active Substance: CEFTRIAXONE
     Indication: COVID-19 pneumonia
     Dosage: 2000 MILLIGRAM, QD
     Route: 042
  9. OXYGEN [Concomitant]
     Active Substance: OXYGEN
     Indication: COVID-19 pneumonia
     Dosage: UNK (INHALATION)
     Route: 055
  10. ZINC GLUCONATE [Concomitant]
     Active Substance: ZINC GLUCONATE
     Indication: COVID-19 pneumonia
     Dosage: 50 MILLIGRAM IN 1DAY
     Route: 065
  11. ZINC GLUCONATE [Concomitant]
     Active Substance: ZINC GLUCONATE
     Dosage: 50 MILLIGRAM 1 IN 1DAY
     Route: 048
  12. ALBUTEROL [Concomitant]
     Active Substance: ALBUTEROL
     Indication: COVID-19 pneumonia
     Dosage: 5 MILLIGRAM IN 8HOUR
     Route: 065
  13. ALBUTEROL [Concomitant]
     Active Substance: ALBUTEROL
     Dosage: UNK (INHALATION)
     Route: 055
  14. METOCLOPRAMIDE [Concomitant]
     Active Substance: METOCLOPRAMIDE
     Indication: COVID-19 pneumonia
     Dosage: 10 MILLIGRAM
     Route: 065
  15. METOCLOPRAMIDE [Concomitant]
     Active Substance: METOCLOPRAMIDE
     Dosage: UNK
     Route: 042
  16. FLUTICASONE FUROATE\VILANTEROL TRIFENATATE [Concomitant]
     Active Substance: FLUTICASONE FUROATE\VILANTEROL TRIFENATATE
     Indication: COVID-19 pneumonia
     Dosage: UNK
     Route: 065
  17. AZITHROMYCIN [Concomitant]
     Active Substance: AZITHROMYCIN
     Indication: COVID-19 pneumonia
     Dosage: 500 MILLIGRAM IN 1 DAY
  18. AZITHROMYCIN [Concomitant]
     Active Substance: AZITHROMYCIN
     Dosage: 500 MILLIGRAM IN 1DAY
     Route: 048
  19. ENOXAPARIN [Concomitant]
     Active Substance: ENOXAPARIN
     Indication: COVID-19 pneumonia
     Dosage: UNK, IN 12 HOUR
     Route: 058
  20. PANTOPRAZOLE [Concomitant]
     Active Substance: PANTOPRAZOLE
     Indication: COVID-19 pneumonia
     Dosage: UNK
     Route: 065
  21. IPRATROPIUM BROMIDE [Concomitant]
     Active Substance: IPRATROPIUM BROMIDE
     Indication: COVID-19 pneumonia
     Dosage: 250 MICROGRAM IN 8HOUR
     Route: 065
  22. IPRATROPIUM BROMIDE [Concomitant]
     Active Substance: IPRATROPIUM BROMIDE
     Dosage: UNK, (INHALATION)
     Route: 055
  23. CHOLECALCIFEROL [Concomitant]
     Active Substance: CHOLECALCIFEROL
     Indication: COVID-19 pneumonia
     Dosage: 50000 INTERNATIONAL UNIT IN 1 WEEK
     Route: 065
  24. CHOLECALCIFEROL [Concomitant]
     Active Substance: CHOLECALCIFEROL
     Dosage: 7150 INTERNATIONAL UNIT 1 IN 1WEEK, (50000 INTERNATIONAL UNIT
     Route: 048
  25. METHYLPREDNISOLONE [Concomitant]
     Active Substance: METHYLPREDNISOLONE
     Indication: COVID-19 pneumonia
     Dosage: 6 MILLIGRAM, QD FOR 2 DAYS
     Route: 065
  26. METHYLPREDNISOLONE [Concomitant]
     Active Substance: METHYLPREDNISOLONE
     Indication: Steroid therapy
     Dosage: IN 8 HOUR
     Route: 042
  27. PANTOPRAZOL DURA [Concomitant]
     Indication: COVID-19 pneumonia
     Dosage: 20 MILLIGRAM IN 1 DAY
     Route: 065
  28. PANTOPRAZOL DURA [Concomitant]
     Dosage: 20 MILLIGRAM IN 1 DAY
     Route: 048

REACTIONS (1)
  - Pancreatitis acute [Recovering/Resolving]
